FAERS Safety Report 4412538-1 (Version None)
Quarter: 2004Q2

REPORT INFORMATION
  Report Type: 
  Country: None (occurrence: None)
  Receive Date: 20040630
  Receipt Date: 20040406
  Transmission Date: 20050107
  Serious: No
  Sender: FDA-Public Use
  Company Number: 04P-163-0256039-00

PATIENT
  Age: 83 Year
  Sex: Male
  Weight: 80.7403 kg

DRUGS (15)
  1. HUMIRA [Suspect]
     Indication: POLYMYALGIA RHEUMATICA
     Dosage: 40 MG, 1 IN 2 WK, SUBCUTANEOUS
     Route: 058
     Dates: start: 20040325
  2. LANSOPRAZOLE [Concomitant]
  3. METOPROLOL SUCCINATE [Concomitant]
  4. ENALAPRIL MALEATE [Concomitant]
  5. DIGOXIN [Concomitant]
  6. PREDNISONE [Concomitant]
  7. FINASTERIDE [Concomitant]
  8. FUROSEMIDE [Concomitant]
  9. ASPIRIN [Concomitant]
  10. ALENDRONATE SODIUM [Concomitant]
  11. FOLIC ACID [Concomitant]
  12. POTASSIUM [Concomitant]
  13. CLOBETASOL PROPIONATE [Concomitant]
  14. FLUOCINONIDE [Concomitant]
  15. COUMADIN [Concomitant]

REACTIONS (3)
  - CONDITION AGGRAVATED [None]
  - INTERNATIONAL NORMALISED RATIO ABNORMAL [None]
  - PRURITUS [None]
